FAERS Safety Report 8846056 (Version 1)
Quarter: 2012Q4

REPORT INFORMATION
  Report Type: Report from Study
  Country: US (occurrence: US)
  Receive Date: 20121017
  Receipt Date: 20121017
  Transmission Date: 20130627
  Serious: Yes (Other)
  Sender: FDA-Public Use
  Company Number: US-BAXTER-2012BAX019336

PATIENT
  Sex: Female

DRUGS (6)
  1. GAMMAGARD S/D [Suspect]
     Indication: HYPOGAMMAGLOBULINEMIA
     Route: 042
  2. GAMMAGARD LIQUID [Suspect]
     Indication: HYPOGAMMAGLOBULINEMIA
     Route: 042
     Dates: end: 20110413
  3. GAMMAGARD [Suspect]
     Indication: HYPOGAMMAGLOBULINEMIA
     Route: 042
  4. METFORMIN [Concomitant]
     Indication: DRUG USE FOR UNKNOWN INDICATION
     Route: 065
  5. LISINOPRIL [Concomitant]
     Indication: DRUG USE FOR UNKNOWN INDICATION
     Route: 065
  6. THYROXINE [Concomitant]
     Indication: DRUG USE FOR UNKNOWN INDICATION
     Route: 065

REACTIONS (2)
  - Upper respiratory tract infection [Not Recovered/Not Resolved]
  - Lower respiratory tract infection [Not Recovered/Not Resolved]
